FAERS Safety Report 9784065 (Version 3)
Quarter: 2014Q1

REPORT INFORMATION
  Report Type: Spontaneous
  Country: US (occurrence: US)
  Receive Date: 20131226
  Receipt Date: 20140331
  Transmission Date: 20141002
  Serious: Yes (Other)
  Sender: FDA-Public Use
  Company Number: US-BAYER-2013-156443

PATIENT
  Age: 43 Year
  Sex: Female
  Weight: 59.86 kg

DRUGS (2)
  1. MIRENA [Suspect]
     Indication: CONTRACEPTION
     Dosage: 20 MCG/24HR, CONT
     Route: 015
     Dates: start: 200508, end: 20110921
  2. FLOVENT [Concomitant]
     Dosage: UNK
     Dates: start: 1999, end: 2013

REACTIONS (7)
  - Gastrointestinal injury [None]
  - Diarrhoea haemorrhagic [None]
  - Injury [None]
  - Device misuse [None]
  - Pain [None]
  - Device issue [None]
  - Abdominal pain upper [None]
